FAERS Safety Report 24406658 (Version 1)
Quarter: 2024Q4

REPORT INFORMATION
  Report Type: Spontaneous
  Country: US (occurrence: None)
  Receive Date: 20241004
  Receipt Date: 20241004
  Transmission Date: 20250115
  Serious: Yes (unspecified)
  Sender: Public
  Company Number: None

PATIENT
  Age: 20 Year
  Sex: Female
  Weight: 64 kg

DRUGS (1)
  1. BRENTUXIMAB VEDOTIN [Suspect]
     Active Substance: BRENTUXIMAB VEDOTIN
     Dosage: OTHER FREQUENCY : ONCE;?
     Route: 042
     Dates: start: 20240919, end: 20240919

REACTIONS (3)
  - Infusion related reaction [None]
  - Oxygen saturation decreased [None]
  - Hypotension [None]

NARRATIVE: CASE EVENT DATE: 20240919
